FAERS Safety Report 12183594 (Version 1)
Quarter: 2016Q1

REPORT INFORMATION
  Report Type: Spontaneous
  Country: US (occurrence: None)
  Receive Date: 20160315
  Receipt Date: 20160315
  Transmission Date: 20160526
  Serious: No
  Sender: FDA-Public Use
  Company Number: None

PATIENT
  Age: 43 Year
  Sex: Female

DRUGS (1)
  1. LUPRON DEPOT [Suspect]
     Active Substance: LEUPROLIDE ACETATE
     Indication: PRODUCT USED FOR UNKNOWN INDICATION
     Dosage: 11.25 MG Q3M IM
     Route: 030
     Dates: start: 20150908, end: 20160314

REACTIONS (5)
  - Fatigue [None]
  - Rash [None]
  - Nausea [None]
  - Lethargy [None]
  - Pruritus [None]

NARRATIVE: CASE EVENT DATE: 20151214
